FAERS Safety Report 5142242-6 (Version None)
Quarter: 2006Q4

REPORT INFORMATION
  Report Type: 
  Country: None (occurrence: None)
  Receive Date: 20061102
  Receipt Date: 20061027
  Transmission Date: 20070319
  Serious: Yes (Life-Threatening, Hospitalization)
  Sender: FDA-Public Use
  Company Number: DE-BRISTOL-MYERS SQUIBB COMPANY-13560693

PATIENT
  Age: 57 Year
  Sex: Female

DRUGS (11)
  1. HYDREA [Suspect]
     Indication: MYELOFIBROSIS
     Dates: start: 20060301
  2. CAPTOPRIL [Concomitant]
  3. TORSEMIDE [Concomitant]
  4. ASPIRIN [Concomitant]
  5. AMLODIPINE [Concomitant]
  6. METOPROLOL TARTRATE [Concomitant]
  7. PANTOPRAZOLE SODIUM [Concomitant]
  8. ISOSORBIDE DINITRATE [Concomitant]
  9. LOSARTAN POSTASSIUM [Concomitant]
  10. OMEGA-3 [Concomitant]
  11. NPH INSULIN [Concomitant]

REACTIONS (1)
  - BRONCHOPNEUMONIA [None]
